FAERS Safety Report 19454894 (Version 1)
Quarter: 2021Q2

REPORT INFORMATION
  Report Type: Spontaneous
  Country: NL (occurrence: NL)
  Receive Date: 20210623
  Receipt Date: 20210623
  Transmission Date: 20210717
  Serious: Yes (Other)
  Sender: FDA-Public Use
  Company Number: NL-ASTRAZENECA-2021A528971

PATIENT
  Age: 49 Year
  Sex: Female
  Weight: 86 kg

DRUGS (3)
  1. QUETIAPINE. [Concomitant]
     Active Substance: QUETIAPINE
     Dosage: 100 MG MILLIGRAMS FILM?COATED TABLET
     Route: 048
  2. SERTRALINE [Concomitant]
     Active Substance: SERTRALINE HYDROCHLORIDE
     Dosage: TABLET, 50 MG (MILLIGRAM)
     Route: 065
  3. ROSUVASTATINE [Suspect]
     Active Substance: ROSUVASTATIN
     Indication: HYPERCHOLESTEROLAEMIA
     Dosage: 1 X PER DAY
     Route: 048
     Dates: start: 20210505, end: 20210519

REACTIONS (7)
  - Depressed mood [Recovering/Resolving]
  - Panic attack [Unknown]
  - Headache [Unknown]
  - Photophobia [Unknown]
  - Suicidal ideation [Recovering/Resolving]
  - Anxiety [Recovering/Resolving]
  - Hyperacusis [Unknown]

NARRATIVE: CASE EVENT DATE: 20210515
